FAERS Safety Report 14242975 (Version 3)
Quarter: 2018Q1

REPORT INFORMATION
  Report Type: Spontaneous
  Country: DE (occurrence: DE)
  Receive Date: 20171201
  Receipt Date: 20180125
  Transmission Date: 20180508
  Serious: Yes (Hospitalization, Other)
  Sender: FDA-Public Use
  Company Number: DE-JNJFOC-20171122708

PATIENT
  Age: 92 Year
  Sex: Female

DRUGS (17)
  1. AMLODIPINE [Suspect]
     Active Substance: AMLODIPINE BESYLATE
     Indication: PRODUCT USED FOR UNKNOWN INDICATION
     Route: 048
     Dates: end: 20170305
  2. ACETYLSALICYLIC ACID [Concomitant]
     Active Substance: ASPIRIN
     Route: 048
     Dates: start: 2014, end: 20170305
  3. ATORVASTATIN [Concomitant]
     Active Substance: ATORVASTATIN
     Route: 048
     Dates: start: 2014, end: 20170305
  4. HCT [Suspect]
     Active Substance: HYDROCHLOROTHIAZIDE
     Indication: PRODUCT USED FOR UNKNOWN INDICATION
     Route: 048
     Dates: end: 20170305
  5. HALDOL [Suspect]
     Active Substance: HALOPERIDOL
     Indication: DELIRIUM
     Route: 065
     Dates: start: 20170301, end: 20170301
  6. RAMIPRIL. [Suspect]
     Active Substance: RAMIPRIL
     Indication: PRODUCT USED FOR UNKNOWN INDICATION
     Route: 048
     Dates: end: 20170305
  7. METOPROLOL. [Suspect]
     Active Substance: METOPROLOL
     Indication: PRODUCT USED FOR UNKNOWN INDICATION
     Route: 048
     Dates: end: 20170305
  8. ACTRAPID [Concomitant]
     Active Substance: INSULIN HUMAN
     Dosage: 11 IE
     Route: 058
     Dates: end: 20170305
  9. HALDOL [Suspect]
     Active Substance: HALOPERIDOL
     Indication: DELIRIUM
     Route: 065
     Dates: start: 20170302, end: 20170302
  10. RISPERDAL [Suspect]
     Active Substance: RISPERIDONE
     Indication: DELIRIUM
     Route: 048
     Dates: start: 20170303, end: 20170305
  11. HALDOL [Suspect]
     Active Substance: HALOPERIDOL
     Indication: DEMENTIA
     Route: 065
     Dates: start: 20170302, end: 20170302
  12. PROTHIPENDYL [Interacting]
     Active Substance: PROTHIPENDYL
     Indication: PRODUCT USED FOR UNKNOWN INDICATION
     Route: 048
     Dates: start: 20170214, end: 20170305
  13. HALDOL [Suspect]
     Active Substance: HALOPERIDOL
     Indication: DEMENTIA
     Route: 065
     Dates: start: 20170301, end: 20170301
  14. RISPERDAL [Suspect]
     Active Substance: RISPERIDONE
     Indication: DEMENTIA
     Route: 048
     Dates: start: 20170303, end: 20170305
  15. PIPAMPERON [Concomitant]
     Active Substance: PIPAMPERONE HYDROCHLORIDE
     Indication: RESTLESSNESS
     Dosage: IN THE EVENING
     Route: 048
     Dates: start: 20170305
  16. LEVEMIR [Concomitant]
     Active Substance: INSULIN DETEMIR
     Dosage: 4 IE
     Route: 058
     Dates: end: 20170305
  17. PIPAMPERON [Concomitant]
     Active Substance: PIPAMPERONE HYDROCHLORIDE
     Indication: RESTLESSNESS
     Dosage: IN EVENING
     Route: 048
     Dates: start: 20170302, end: 20170303

REACTIONS (7)
  - Acute myocardial infarction [Unknown]
  - Drug interaction [Unknown]
  - Myocardial infarction [Recovered/Resolved]
  - Cardiogenic shock [Unknown]
  - Altered state of consciousness [Unknown]
  - Hypotension [Unknown]
  - Bradycardia [Unknown]

NARRATIVE: CASE EVENT DATE: 201703
